FAERS Safety Report 7323671 (Version 2)
Quarter: 2016Q1

REPORT INFORMATION
  Report Type: Spontaneous
  Country: DE (occurrence: DE)
  Receive Date: 20100318
  Receipt Date: 20160112
  Transmission Date: 20160526
  Serious: Yes (Hospitalization, Other)
  Sender: FDA-Public Use
  Company Number: DE-BRISTOL-MYERS SQUIBB COMPANY-14532790

PATIENT
  Age: 42 Year
  Sex: Female
  Weight: 68 kg

DRUGS (3)
  1. ABILIFY [Suspect]
     Active Substance: ARIPIPRAZOLE
     Indication: SCHIZOAFFECTIVE DISORDER
     Dosage: 30 MG, QD
     Route: 048
     Dates: start: 200507, end: 20090305
  2. FLUOXETINE [Suspect]
     Active Substance: FLUOXETINE HYDROCHLORIDE
     Indication: DEPRESSION
     Dosage: 40 MG, QD
     Route: 048
     Dates: start: 200502
  3. VALPROATE [Suspect]
     Active Substance: VALPROATE SODIUM
     Indication: MOOD SWINGS
     Dosage: 450 MG, QD
     Route: 048
     Dates: start: 200609, end: 20090305

REACTIONS (4)
  - Vaginal haemorrhage [Unknown]
  - Premature delivery [Unknown]
  - Caesarean section [Unknown]
  - Maternal exposure during pregnancy [Recovered/Resolved]

NARRATIVE: CASE EVENT DATE: 20091020
